FAERS Safety Report 9260566 (Version 1)
Quarter: 2013Q2

REPORT INFORMATION
  Report Type: Spontaneous
  Country: SE (occurrence: SE)
  Receive Date: 20130429
  Receipt Date: 20130429
  Transmission Date: 20140414
  Serious: Yes (Death, Life-Threatening)
  Sender: FDA-Public Use
  Company Number: SE-ROXANE LABORATORIES, INC.-2013-RO-00600RO

PATIENT
  Age: 74 Year
  Sex: Female

DRUGS (7)
  1. BUPRENORPHINE HYDROCHLORIDE [Suspect]
  2. DIAZEPAM [Suspect]
  3. CARISOPRODOL [Suspect]
  4. MEPROBAMATE [Suspect]
  5. TRAMADOL [Suspect]
  6. APROBARBITAL [Suspect]
  7. AMITRIPTYLINE [Suspect]

REACTIONS (3)
  - Overdose [Fatal]
  - Completed suicide [Fatal]
  - Pneumonia [Unknown]
